FAERS Safety Report 12378500 (Version 2)
Quarter: 2016Q2

REPORT INFORMATION
  Report Type: Report from Study
  Country: MZ (occurrence: MZ)
  Receive Date: 20160517
  Receipt Date: 20160607
  Transmission Date: 20160815
  Serious: Yes (Other)
  Sender: FDA-Public Use
  Company Number: MZ-BRISTOL-MYERS SQUIBB COMPANY-BMS-2016-037701

PATIENT
  Age: 40 Year
  Sex: Female
  Weight: 44 kg

DRUGS (11)
  1. EFAVIRENZ [Suspect]
     Active Substance: EFAVIRENZ
     Indication: HIV INFECTION
     Dosage: UNK, QD
     Route: 065
     Dates: start: 20160418, end: 20160508
  2. EXTERNAL-LAMIVUDINE [Suspect]
     Active Substance: LAMIVUDINE
     Dosage: UNK, QD
     Route: 065
     Dates: start: 20160418, end: 20160508
  3. EXTERNAL-TENOFOVIR [Suspect]
     Active Substance: TENOFOVIR
     Indication: HIV INFECTION
     Dosage: UNK, QD
     Route: 065
     Dates: start: 20160418, end: 20160508
  4. RIFAMPIN. [Concomitant]
     Active Substance: RIFAMPIN
     Indication: TUBERCULOSIS
     Dosage: 150 MG, UNK
     Route: 048
     Dates: start: 20160324, end: 20160504
  5. COTRIMOXAZOLE [Concomitant]
     Active Substance: SULFAMETHOXAZOLE\TRIMETHOPRIM
     Indication: PROPHYLAXIS
     Dosage: 2 TAB, QD
     Route: 048
     Dates: start: 20160418, end: 20160501
  6. EXTERNAL-LAMIVUDINE [Suspect]
     Active Substance: LAMIVUDINE
     Indication: HIV INFECTION
     Dosage: UNK, QD
     Route: 065
     Dates: start: 20160509, end: 20160510
  7. PYRAZINAMIDE. [Concomitant]
     Active Substance: PYRAZINAMIDE
     Indication: TUBERCULOSIS
     Dosage: 275 MG, UNK
     Route: 048
     Dates: start: 20160324, end: 20160504
  8. EXTERNAL-TENOFOVIR [Suspect]
     Active Substance: TENOFOVIR
     Dosage: UNK, QD
     Route: 065
     Dates: start: 20160509, end: 20160510
  9. ETHAMBUTOL [Concomitant]
     Active Substance: ETHAMBUTOL HYDROCHLORIDE
     Indication: TUBERCULOSIS
     Dosage: 400 MG, UNK
     Route: 048
     Dates: start: 20160324, end: 20160504
  10. EFAVIRENZ [Suspect]
     Active Substance: EFAVIRENZ
     Dosage: UNK QD
     Route: 065
     Dates: start: 20160509, end: 20160510
  11. ISONIAZID. [Concomitant]
     Active Substance: ISONIAZID
     Indication: TUBERCULOSIS
     Dosage: 75 MG, UNK
     Route: 048
     Dates: start: 20160324, end: 20160504

REACTIONS (2)
  - Rash [Recovering/Resolving]
  - Transaminases increased [Not Recovered/Not Resolved]

NARRATIVE: CASE EVENT DATE: 20160426
